FAERS Safety Report 7357347-9 (Version None)
Quarter: 2011Q1

REPORT INFORMATION
  Report Type: 
  Country: None (occurrence: None)
  Receive Date: 20110311
  Receipt Date: 20110311
  Transmission Date: 20110831
  Serious: Yes (Hospitalization)
  Sender: FDA-Public Use
  Company Number: None

PATIENT
  Sex: Female
  Weight: 69.1 kg

DRUGS (4)
  1. RITUXIMAB 25MG GENENTECH [Suspect]
     Indication: CENTRAL NERVOUS SYSTEM LYMPHOMA
     Dosage: 25MG ONE TIME (X 3 DOSES INTRATHECAL
     Route: 037
     Dates: start: 20110302
  2. RITUXIMAB 25MG GENENTECH [Suspect]
     Indication: CENTRAL NERVOUS SYSTEM LYMPHOMA
     Dosage: 25MG ONE TIME (X 3 DOSES INTRATHECAL
     Route: 037
     Dates: start: 20110304
  3. RITUXIMAB 25MG GENENTECH [Suspect]
     Indication: CENTRAL NERVOUS SYSTEM LYMPHOMA
     Dosage: 25MG ONE TIME (X 3 DOSES INTRATHECAL
     Route: 037
     Dates: start: 20110307
  4. METHOTREXATE 15MG [Suspect]
     Dosage: 12MG ONE TIME (X1 DOSE) INTRATHECAL
     Route: 037
     Dates: start: 20110304

REACTIONS (2)
  - COAGULOPATHY [None]
  - HAEMORRHAGIC DISORDER [None]
